FAERS Safety Report 9140344 (Version 2)
Quarter: 2014Q2

REPORT INFORMATION
  Report Type: Spontaneous
  Country: US (occurrence: US)
  Receive Date: 20130305
  Receipt Date: 20140506
  Transmission Date: 20141212
  Serious: Yes (Hospitalization, Other)
  Sender: FDA-Public Use
  Company Number: US-PFIZER INC-2013074392

PATIENT
  Age: 84 Year
  Sex: Female
  Weight: 60.32 kg

DRUGS (10)
  1. CELEBREX [Suspect]
     Indication: OSTEOARTHRITIS
     Dosage: 200 MG, DAILY
     Route: 048
     Dates: start: 201212
  2. CELEBREX [Suspect]
     Indication: ARTHRALGIA
     Dosage: 200 MG, 1X/DAY
     Dates: start: 2013
  3. CLONIDINE [Suspect]
     Indication: HYPERTENSION
     Dosage: 0.1 MG, 2X/DAY
  4. CLONIDINE [Suspect]
     Dosage: 0.1 MG, 3X/DAY
  5. SIMVASTATIN [Concomitant]
     Dosage: 40 MG, 1X/DAY
  6. POTASSIUM [Concomitant]
     Dosage: 18 MEQ, 1X/DAY
  7. TRAMADOL [Concomitant]
     Dosage: 50 MG, AS NEEDED
  8. NEXIUM [Concomitant]
     Dosage: 40 MG, 1X/DAY
  9. FUROSEMIDE [Concomitant]
     Dosage: 40 MG, 1X/DAY
  10. CITALOPRAM [Concomitant]
     Dosage: 20 MG, 1X/DAY

REACTIONS (2)
  - Cerebrovascular accident [Unknown]
  - Blood pressure inadequately controlled [Unknown]
